FAERS Safety Report 5883438-5 (Version None)
Quarter: 2008Q3

REPORT INFORMATION
  Report Type: 
  Country: None (occurrence: None)
  Receive Date: 20080910
  Receipt Date: 20080827
  Transmission Date: 20090109
  Serious: Yes (Hospitalization)
  Sender: FDA-Public Use
  Company Number: 2008BI021529

PATIENT
  Age: 32 Year
  Sex: Male
  Weight: 59 kg

DRUGS (5)
  1. TYSABRI [Suspect]
     Indication: MULTIPLE SCLEROSIS
     Dosage: 300 MG; QM; IV
     Route: 042
     Dates: start: 20080306, end: 20080711
  2. BETASERON [Concomitant]
  3. CHRONIC SYSTEMIC [Concomitant]
  4. STEROIDS [Concomitant]
  5. IMMUNE GLOBULIN INTRAVENOUS (HUMAN) [Concomitant]

REACTIONS (5)
  - HAEMATOCRIT DECREASED [None]
  - HAEMOGLOBIN DECREASED [None]
  - OPPORTUNISTIC INFECTION [None]
  - PLATELET COUNT INCREASED [None]
  - TUBERCULOUS PLEURISY [None]
